FAERS Safety Report 8911385 (Version 2)
Quarter: 2012Q4

REPORT INFORMATION
  Report Type: 
  Country: US (occurrence: US)
  Receive Date: 20121116
  Receipt Date: 20121123
  Transmission Date: 20130627
  Serious: Yes (Other)
  Sender: FDA-Public Use
  Company Number: US-JNJFOC-9830613

PATIENT
  Sex: Male

DRUGS (4)
  1. ZYRTEC [Suspect]
     Route: 048
  2. ZYRTEC [Suspect]
     Indication: MULTIPLE ALLERGIES
     Dosage: Frequency Text: DAILY Daily Dose Qty: 5 mg
     Route: 048
     Dates: start: 19980817, end: 19980907
  3. ANTI-INFLAMMATORY [Concomitant]
  4. INTAL [Concomitant]
     Route: 055

REACTIONS (3)
  - Oculogyric crisis [Not Recovered/Not Resolved]
  - Muscle twitching [Not Recovered/Not Resolved]
  - Tic [Not Recovered/Not Resolved]
